FAERS Safety Report 17388746 (Version 8)
Quarter: 2022Q2

REPORT INFORMATION
  Report Type: Report from Study
  Country: JP (occurrence: JP)
  Receive Date: 20200206
  Receipt Date: 20220526
  Transmission Date: 20220721
  Serious: Yes (Hospitalization)
  Sender: FDA-Public Use
  Company Number: JP-TAKEDA-2020TJP002526AA

PATIENT
  Age: 39 Year
  Sex: Female
  Weight: 59.6 kg

DRUGS (49)
  1. VEDOLIZUMAB [Suspect]
     Active Substance: VEDOLIZUMAB
     Indication: Prophylaxis against graft versus host disease
     Dosage: UNK
     Route: 042
     Dates: start: 20191030, end: 20191030
  2. VEDOLIZUMAB [Suspect]
     Active Substance: VEDOLIZUMAB
     Dosage: UNK
     Route: 042
     Dates: start: 20191211, end: 20191211
  3. VEDOLIZUMAB [Suspect]
     Active Substance: VEDOLIZUMAB
     Dosage: UNK
     Route: 042
     Dates: start: 20200108, end: 20200108
  4. METHOTREXATE [Suspect]
     Active Substance: METHOTREXATE
     Indication: Prophylaxis against graft versus host disease
     Dosage: UNK
     Route: 041
     Dates: start: 20191101, end: 20191101
  5. METHOTREXATE [Suspect]
     Active Substance: METHOTREXATE
     Dosage: UNK
     Route: 041
     Dates: start: 20191103, end: 20191103
  6. METHOTREXATE [Suspect]
     Active Substance: METHOTREXATE
     Dosage: UNK
     Route: 041
     Dates: start: 20191106, end: 20191106
  7. METHOTREXATE [Suspect]
     Active Substance: METHOTREXATE
     Dosage: UNK
     Route: 041
     Dates: start: 20191111, end: 20191111
  8. TACROLIMUS [Concomitant]
     Active Substance: TACROLIMUS
     Indication: Prophylaxis against graft versus host disease
     Dosage: UNK
     Route: 042
     Dates: start: 20191030, end: 20191210
  9. TACROLIMUS [Concomitant]
     Active Substance: TACROLIMUS
     Dosage: UNK
     Route: 048
     Dates: start: 20191210
  10. TACROLIMUS [Concomitant]
     Active Substance: TACROLIMUS
     Dosage: 1.0 MILLIGRAM
     Route: 042
     Dates: start: 20200206, end: 20200207
  11. TACROLIMUS [Concomitant]
     Active Substance: TACROLIMUS
     Dosage: 1.2 MILLIGRAM
     Route: 042
     Dates: start: 20200208, end: 20200209
  12. TACROLIMUS [Concomitant]
     Active Substance: TACROLIMUS
     Dosage: 1.6 MILLIGRAM
     Route: 042
     Dates: start: 20200210, end: 20200211
  13. TACROLIMUS [Concomitant]
     Active Substance: TACROLIMUS
     Dosage: 1.8 MILLIGRAM
     Route: 042
     Dates: start: 20200212
  14. VALACYCLOVIR HYDROCHLORIDE [Concomitant]
     Active Substance: VALACYCLOVIR HYDROCHLORIDE
     Indication: Antiviral prophylaxis
     Dosage: 500 MILLIGRAM, BID
     Route: 048
     Dates: start: 20191021, end: 20191111
  15. VALACYCLOVIR HYDROCHLORIDE [Concomitant]
     Active Substance: VALACYCLOVIR HYDROCHLORIDE
     Dosage: 500 MILLIGRAM, BID
     Route: 048
     Dates: start: 20191127, end: 20191201
  16. VALACYCLOVIR HYDROCHLORIDE [Concomitant]
     Active Substance: VALACYCLOVIR HYDROCHLORIDE
     Dosage: 500 MILLIGRAM, 3/WEEK
     Route: 048
     Dates: start: 20191202, end: 20191211
  17. VALACYCLOVIR HYDROCHLORIDE [Concomitant]
     Active Substance: VALACYCLOVIR HYDROCHLORIDE
     Dosage: 500 GRAM, 2/WEEK
     Route: 048
     Dates: start: 20191212, end: 20200730
  18. URSODIOL [Concomitant]
     Active Substance: URSODIOL
     Indication: Antiviral prophylaxis
     Dosage: 200 MILLIGRAM, TID
     Route: 048
     Dates: start: 20191021
  19. SULFAMETHOXAZOLE\TRIMETHOPRIM [Concomitant]
     Active Substance: SULFAMETHOXAZOLE\TRIMETHOPRIM
     Indication: Infection prophylaxis
     Dosage: 1 DOSAGE FORM, 3/WEEK
     Route: 048
     Dates: start: 20191202, end: 20191211
  20. ESOMEPRAZOLE MAGNESIUM [Concomitant]
     Active Substance: ESOMEPRAZOLE MAGNESIUM
     Indication: Prophylaxis against gastrointestinal ulcer
     Dosage: 20 MILLIGRAM, QD
     Route: 048
     Dates: start: 20191024, end: 20191111
  21. ESOMEPRAZOLE MAGNESIUM [Concomitant]
     Active Substance: ESOMEPRAZOLE MAGNESIUM
     Dosage: 20 MILLIGRAM, QD
     Route: 048
     Dates: start: 20191127
  22. LEVETIRACETAM [Concomitant]
     Active Substance: LEVETIRACETAM
     Indication: Seizure prophylaxis
     Dosage: 500 MILLIGRAM, BID
     Route: 048
     Dates: start: 20191024, end: 20191102
  23. LETERMOVIR [Concomitant]
     Active Substance: LETERMOVIR
     Indication: Antiviral prophylaxis
     Dosage: 480 MILLIGRAM, QD
     Route: 048
     Dates: start: 20191031, end: 20200206
  24. HEPARINOID [Concomitant]
     Indication: Dry skin prophylaxis
     Dosage: UNK
     Route: 061
     Dates: start: 20190627, end: 202003
  25. HEPARINOID [Concomitant]
     Dosage: UNK
     Route: 061
     Dates: start: 20190627, end: 20191220
  26. AZ COMBINATION [Concomitant]
     Indication: Infection prophylaxis
     Dosage: UNK
     Route: 062
     Dates: start: 20191025, end: 20191101
  27. LIDOCAINE [Concomitant]
     Active Substance: LIDOCAINE
     Indication: Prophylaxis
     Dosage: UNK
     Route: 061
     Dates: start: 20191025, end: 20191220
  28. CASPOFUNGIN ACETATE [Concomitant]
     Active Substance: CASPOFUNGIN ACETATE
     Indication: Antifungal prophylaxis
     Dosage: 50 MILLIGRAM, QD
     Route: 041
     Dates: start: 20191022, end: 20191204
  29. DEXTROSE\SODIUM CHLORIDE\SODIUM LACTATE [Concomitant]
     Active Substance: DEXTROSE\SODIUM CHLORIDE\SODIUM LACTATE
     Indication: Prophylaxis against dehydration
     Dosage: 500 MILLILITER
     Route: 041
     Dates: start: 20191023, end: 20191201
  30. KCL CORRECTIVE [Concomitant]
     Indication: Prophylaxis
     Dosage: 20 MILLIEQUIVALENT
     Route: 041
     Dates: start: 20191024, end: 20191024
  31. DALTEPARIN SODIUM [Concomitant]
     Active Substance: DALTEPARIN SODIUM
     Indication: Thrombosis prophylaxis
     Dosage: 4500 INTERNATIONAL UNIT, QD
     Route: 041
     Dates: start: 20191023, end: 20191204
  32. INSULIN HUMAN [Concomitant]
     Active Substance: INSULIN HUMAN
     Indication: Prophylaxis
     Dosage: UNK, QD
     Route: 041
     Dates: start: 20191030, end: 20191208
  33. DEXCHLORPHENIRAMINE MALEATE [Concomitant]
     Active Substance: DEXCHLORPHENIRAMINE MALEATE
     Indication: Allergy prophylaxis
     Dosage: 5 MILLIGRAM
     Route: 041
     Dates: start: 20191029, end: 20191031
  34. METHYLPREDNISOLONE SODIUM SUCCINATE [Concomitant]
     Active Substance: METHYLPREDNISOLONE SODIUM SUCCINATE
     Indication: Allergy prophylaxis
     Dosage: 125 MILLIGRAM, QD
     Route: 041
     Dates: start: 20191029, end: 20191031
  35. TAZOBACTAM [Concomitant]
     Active Substance: TAZOBACTAM
     Indication: Infection prophylaxis
     Dosage: 4.5 GRAM, QID
     Route: 041
     Dates: start: 20191025, end: 20191110
  36. GRANISETRON HYDROCHLORIDE [Concomitant]
     Active Substance: GRANISETRON HYDROCHLORIDE
     Indication: Prophylaxis of nausea and vomiting
     Dosage: 3 MILLIGRAM
     Route: 041
     Dates: start: 20191030, end: 20191030
  37. LENOGRASTIM [Concomitant]
     Active Substance: LENOGRASTIM
     Indication: Neutrophil count abnormal
     Dosage: 300 MICROGRAM
     Route: 041
     Dates: start: 20191105, end: 20191119
  38. DIBASIC SODIUM PHOSPHATE DODECAHYDRATE [Concomitant]
     Indication: Prophylaxis
     Dosage: 20 MILLILITER
     Route: 041
     Dates: start: 20191111, end: 20191113
  39. OMEPRAZOLE SODIUM [Concomitant]
     Active Substance: OMEPRAZOLE SODIUM
     Indication: Prophylaxis against gastrointestinal ulcer
     Dosage: 20 MILLIGRAM, BID
     Route: 041
     Dates: start: 20191112, end: 20191126
  40. AMINO ACIDS\DEXTROSE\ELECTROLYTES NOS\VITAMINS [Concomitant]
     Active Substance: AMINO ACIDS\DEXTROSE\ELECTROLYTES NOS\VITAMINS
     Indication: Prophylaxis against dehydration
     Dosage: 500 MILLILITER
     Route: 041
     Dates: start: 20191112, end: 20191113
  41. ACYCLOVIR [Concomitant]
     Active Substance: ACYCLOVIR
     Indication: Antiviral prophylaxis
     Dosage: 250 MILLIGRAM, QD
     Route: 041
     Dates: start: 20191112, end: 20191126
  42. FLUCONAZOLE [Concomitant]
     Active Substance: FLUCONAZOLE
     Indication: Antifungal prophylaxis
     Dosage: 200 MILLIGRAM, QD
     Route: 048
     Dates: start: 20191205, end: 20200227
  43. ELNEOPA NF NO.1 [Concomitant]
     Indication: Prophylaxis against dehydration
     Dosage: 1000 MILLILITER, QD
     Route: 041
     Dates: start: 20191202, end: 20191208
  44. FILGRASTIM [Concomitant]
     Active Substance: FILGRASTIM
     Indication: Neutrophil count abnormal
     Dosage: 75 MICROGRAM
     Route: 058
     Dates: start: 20191202, end: 20191202
  45. SOLDEM 3A [Concomitant]
     Active Substance: CARBOHYDRATES\POTASSIUM CHLORIDE\SODIUM CHLORIDE\SODIUM LACTATE
     Indication: Prophylaxis against dehydration
     Dosage: 500 MILLILITER
     Route: 041
     Dates: start: 20191209, end: 20191209
  46. ALBUTEROL SULFATE [Concomitant]
     Active Substance: ALBUTEROL SULFATE
     Indication: Allergy prophylaxis
     Dosage: 0.3 MILLILITER, MONTHLY
     Route: 055
     Dates: start: 20191216, end: 20201021
  47. PENTAMIDINE ISETHIONATE [Concomitant]
     Active Substance: PENTAMIDINE ISETHIONATE
     Indication: Antifungal prophylaxis
     Dosage: 300 MILLIGRAM, MONTHLY
     Route: 055
     Dates: start: 20191216, end: 20201021
  48. METOCLOPRAMIDE [Concomitant]
     Active Substance: METOCLOPRAMIDE
     Indication: Prophylaxis of nausea and vomiting
     Dosage: 5 MILLIGRAM
     Route: 048
     Dates: start: 20191220, end: 201912
  49. SODIUM GUALENATE MONOHYDRATE [Concomitant]
     Active Substance: SODIUM GUALENATE MONOHYDRATE
     Indication: Prophylaxis
     Dosage: UNK
     Route: 061
     Dates: start: 20191220, end: 202001

REACTIONS (2)
  - Pancytopenia [Recovered/Resolved]
  - Cystitis haemorrhagic [Recovered/Resolved]

NARRATIVE: CASE EVENT DATE: 20200130
